FAERS Safety Report 12067381 (Version 1)
Quarter: 2016Q1

REPORT INFORMATION
  Report Type: Spontaneous
  Country: US (occurrence: None)
  Receive Date: 20160210
  Receipt Date: 20160210
  Transmission Date: 20160526
  Serious: Yes (Other)
  Sender: FDA-Public Use
  Company Number: None

PATIENT
  Age: 44 Year
  Sex: Female
  Weight: 63.5 kg

DRUGS (1)
  1. KLONOPIN [Suspect]
     Active Substance: CLONAZEPAM
     Indication: ANXIETY
     Dosage: KLONOPIN, ONCE DAILY, TAKEN BY MOUTH

REACTIONS (5)
  - Vomiting [None]
  - Diarrhoea [None]
  - Drug tolerance [None]
  - Blindness [None]
  - Lethargy [None]

NARRATIVE: CASE EVENT DATE: 20150507
